FAERS Safety Report 16790634 (Version 1)
Quarter: 2019Q3

REPORT INFORMATION
  Report Type: Spontaneous
  Country: CN (occurrence: CN)
  Receive Date: 20190910
  Receipt Date: 20190910
  Transmission Date: 20191005
  Serious: Yes (Other)
  Sender: FDA-Public Use
  Company Number: CN-PFIZER INC-2019384835

PATIENT
  Age: 64 Year
  Sex: Male
  Weight: 82.2 kg

DRUGS (23)
  1. INSULIN [Suspect]
     Active Substance: INSULIN NOS
     Indication: BLOOD GLUCOSE ABNORMAL
     Dosage: 15 UNITS, 1X/DAY
     Route: 041
     Dates: start: 20190810, end: 20190820
  2. IRON SUCROSE [Suspect]
     Active Substance: IRON SUCROSE
     Indication: MINERAL SUPPLEMENTATION
     Dosage: 200 MG, 1X/DAY
     Route: 041
     Dates: start: 20190819, end: 20190820
  3. DAI WEN [Suspect]
     Active Substance: VALSARTAN
     Indication: HYPERTENSION
     Dosage: 80 MG, 1X/DAY
     Route: 048
     Dates: start: 20190813, end: 20190903
  4. SULPERAZON [Suspect]
     Active Substance: CEFOPERAZONE SODIUM\SULBACTAM SODIUM
     Indication: LUNG INFECTION
     Dosage: 2 G, 2X/DAY
     Route: 041
     Dates: start: 20190813, end: 20190829
  5. SODIUM CHLORIDE. [Concomitant]
     Active Substance: SODIUM CHLORIDE
     Dosage: 100 ML, 1X/DAY
     Route: 041
     Dates: start: 20190819, end: 20190820
  6. DIE LI [Suspect]
     Active Substance: GABAPENTIN
     Indication: ANALGESIC THERAPY
     Dosage: 0.3 G, 3X/DAY
     Route: 048
     Dates: start: 20190818, end: 20190901
  7. SODIUM CHLORIDE. [Concomitant]
     Active Substance: SODIUM CHLORIDE
     Dosage: 100 ML, 1X/DAY
     Route: 041
     Dates: start: 20190819, end: 20190823
  8. CONCENTRATED SODIUM CHLORIDE [Concomitant]
     Active Substance: SODIUM CHLORIDE
     Indication: ELECTROLYTE IMBALANCE
     Dosage: 50 ML, 1X/DAY
     Route: 041
     Dates: start: 20190810, end: 20190820
  9. HERI [THYMALFASIN] [Suspect]
     Active Substance: THYMALFASIN
     Indication: NUTRITIONAL SUPPLEMENTATION
     Dosage: 1.6 MG, 2X/WEEK
     Route: 058
     Dates: start: 20190812, end: 20190903
  10. GLUCOSE [Suspect]
     Active Substance: DEXTROSE
     Indication: VEHICLE SOLUTION USE
     Dosage: 500 ML, 1X/DAY
     Route: 041
     Dates: start: 20190810, end: 20190820
  11. GLUCOSE [Suspect]
     Active Substance: DEXTROSE
     Indication: NUTRITIONAL SUPPLEMENTATION
     Dosage: 200 ML, 1X/DAY
     Route: 041
     Dates: start: 20190810, end: 20190820
  12. FAT EMULSION NOS [Suspect]
     Active Substance: EGG PHOSPHOLIPIDS\SAFFLOWER OIL\SOYBEAN OIL
     Indication: NUTRITIONAL SUPPLEMENTATION
     Dosage: 250 ML, 1X/DAY
     Route: 041
     Dates: start: 20190810, end: 20190820
  13. KANG LAI TE ZHU SHE YE [Suspect]
     Active Substance: COIX LACRYMA-JOBI VAR. MA-YUEN SEED
     Indication: OESOPHAGEAL CARCINOMA
     Dosage: 10 G, 1X/DAY
     Route: 041
     Dates: start: 20190811, end: 20190820
  14. WATER-SOLUBLE VITAMIN [Suspect]
     Active Substance: VITAMINS
     Indication: THERAPEUTIC PROCEDURE
     Dosage: 1 BOTTLE, 1X/DAY
     Route: 041
     Dates: start: 20190810, end: 20190820
  15. POTASSIUM CHLORIDE. [Concomitant]
     Active Substance: POTASSIUM CHLORIDE
     Indication: ELECTROLYTE IMBALANCE
     Dosage: 4.5 G, 1X/DAY
     Route: 041
     Dates: start: 20190810, end: 20190820
  16. CELECOXIB. [Suspect]
     Active Substance: CELECOXIB
     Indication: ANALGESIC THERAPY
     Dosage: 200 MG, 2X/DAY
     Route: 048
     Dates: start: 20190817, end: 20190903
  17. NOVAMIN [AMINO ACIDS NOS] [Suspect]
     Active Substance: AMINO ACIDS
     Indication: AMINO ACID LEVEL DECREASED
     Dosage: 500 ML, 1X/DAY
     Route: 041
     Dates: start: 20190810, end: 20190820
  18. ADDAMEL [ELECTROLYTES NOS;MINERALS NOS;SORBITOL] [Suspect]
     Active Substance: ELECTROLYTES NOS\MINERALS\SORBITOL
     Indication: THERAPEUTIC PROCEDURE
     Dosage: 10 ML, 1X/DAY
     Route: 041
     Dates: start: 20190810, end: 20190820
  19. HERI [THYMALFASIN] [Suspect]
     Active Substance: THYMALFASIN
     Indication: IMMUNODEFICIENCY
  20. SODIUM CHLORIDE. [Concomitant]
     Active Substance: SODIUM CHLORIDE
     Indication: VEHICLE SOLUTION USE
     Dosage: 100 ML, 2X/DAY
     Route: 041
     Dates: start: 20190813, end: 20190829
  21. NORVASC [Suspect]
     Active Substance: AMLODIPINE BESYLATE
     Indication: HYPERTENSION
     Dosage: 5 MG, 2X/DAY
     Route: 048
     Dates: start: 20190816, end: 20190823
  22. ESOMEPRAZOLE SODIUM. [Suspect]
     Active Substance: ESOMEPRAZOLE SODIUM
     Indication: GASTRIC DISORDER
     Dosage: 40 MG, 1X/DAY
     Route: 041
     Dates: start: 20190819, end: 20190823
  23. VITALIPID [VITAMINS NOS] [Suspect]
     Active Substance: VITAMINS
     Indication: THERAPEUTIC PROCEDURE
     Dosage: 10 ML, 1X/DAY
     Route: 041
     Dates: start: 20190810, end: 20190820

REACTIONS (1)
  - Hepatic function abnormal [Recovering/Resolving]

NARRATIVE: CASE EVENT DATE: 20190820
